FAERS Safety Report 11290787 (Version 1)
Quarter: 2015Q3

REPORT INFORMATION
  Report Type: Spontaneous
  Country: US (occurrence: US)
  Receive Date: 20150722
  Receipt Date: 20150722
  Transmission Date: 20151125
  Serious: No
  Sender: FDA-Public Use
  Company Number: US-UNITED THERAPEUTICS-UNT-2015-004060

PATIENT
  Age: 61 Year
  Sex: Female
  Weight: 91.16 kg

DRUGS (2)
  1. TYVASO [Suspect]
     Active Substance: TREPROSTINIL
     Indication: PULMONARY ARTERIAL HYPERTENSION
     Dosage: 18-54 MICROGRAMS, QID
     Dates: start: 20150402, end: 20150410
  2. OPSUMIT [Concomitant]
     Active Substance: MACITENTAN
     Indication: PRODUCT USED FOR UNKNOWN INDICATION

REACTIONS (9)
  - Dizziness [Not Recovered/Not Resolved]
  - Dysphonia [Recovered/Resolved]
  - Fluid overload [Unknown]
  - Abdominal distension [Unknown]
  - Right ventricular failure [Unknown]
  - Oedema [Unknown]
  - Flushing [Recovered/Resolved]
  - Productive cough [Not Recovered/Not Resolved]
  - Weight increased [Unknown]

NARRATIVE: CASE EVENT DATE: 201504
